FAERS Safety Report 11994978 (Version 2)
Quarter: 2016Q1

REPORT INFORMATION
  Report Type: Spontaneous
  Country: RS (occurrence: RS)
  Receive Date: 20160203
  Receipt Date: 20160204
  Transmission Date: 20160526
  Serious: Yes (Hospitalization)
  Sender: FDA-Public Use
  Company Number: RS-009507513-1602SRB000793

PATIENT
  Age: 62 Year
  Sex: Female
  Weight: 59 kg

DRUGS (2)
  1. PEGINTRON [Suspect]
     Active Substance: PEGINTERFERON ALFA-2B
     Indication: CHRONIC HEPATITIS C
     Dosage: 100 MG, QW
     Route: 058
     Dates: start: 20150601, end: 20151109
  2. REBETOL [Suspect]
     Active Substance: RIBAVIRIN
     Indication: CHRONIC HEPATITIS C
     Dosage: FREQUENCY: TWO TABLETS IN THE MORNING AND THREE TABLETS IN THE EVENING
     Route: 048
     Dates: start: 20150601, end: 20151109

REACTIONS (7)
  - Erythema nodosum [Recovering/Resolving]
  - Transfer factor reduced [Recovering/Resolving]
  - Sarcoidosis [Recovering/Resolving]
  - Cough [Recovering/Resolving]
  - Angiotensin converting enzyme increased [Recovering/Resolving]
  - Lymphadenopathy mediastinal [Recovering/Resolving]
  - Granuloma [Recovering/Resolving]

NARRATIVE: CASE EVENT DATE: 20151020
